FAERS Safety Report 8397190-5 (Version None)
Quarter: 2012Q2

REPORT INFORMATION
  Report Type: 
  Country: None (occurrence: None)
  Receive Date: 20120530
  Receipt Date: 20120523
  Transmission Date: 20120825
  Serious: Yes (Hospitalization)
  Sender: FDA-Public Use
  Company Number: JP-MERCK-1204USA04238

PATIENT
  Age: 75 Year
  Sex: Female

DRUGS (10)
  1. WARFARIN POTASSIUM [Suspect]
     Indication: ATRIAL FIBRILLATION
     Route: 048
  2. ZADITEN [Concomitant]
     Route: 048
  3. VERAPAMIL HCL [Concomitant]
     Route: 048
  4. ASPIRIN [Suspect]
     Route: 048
  5. DIART [Concomitant]
     Indication: CARDIAC FAILURE CHRONIC
     Route: 048
  6. FUROSEMIDE [Concomitant]
     Indication: CARDIAC FAILURE CHRONIC
     Route: 048
  7. LANSOPRAZOLE [Concomitant]
     Route: 048
  8. LEVOTHYROXINE SODIUM [Concomitant]
     Indication: HYPOTHYROIDISM
     Route: 048
  9. OLOPATADINE HCL [Concomitant]
     Route: 048
  10. FOSAMAX [Suspect]
     Indication: OSTEOPOROSIS
     Route: 048
     Dates: start: 20070101, end: 20120422

REACTIONS (2)
  - SMALL INTESTINAL HAEMORRHAGE [None]
  - ANAEMIA MACROCYTIC [None]
